FAERS Safety Report 6924305-5 (Version None)
Quarter: 2010Q3

REPORT INFORMATION
  Report Type: 
  Country: None (occurrence: None)
  Receive Date: 20100811
  Receipt Date: 20100811
  Transmission Date: 20110219
  Serious: Yes (Hospitalization)
  Sender: FDA-Public Use
  Company Number: None

PATIENT
  Sex: Male
  Weight: 58.514 kg

DRUGS (1)
  1. PRALATREXATE [Suspect]
     Dosage: 26 MG WEEKLY IV
     Route: 042
     Dates: start: 20100618, end: 20100722

REACTIONS (1)
  - CONFUSIONAL STATE [None]
